FAERS Safety Report 17816711 (Version 1)
Quarter: 2020Q2

REPORT INFORMATION
  Report Type: Spontaneous
  Country: GB (occurrence: GB)
  Receive Date: 20200522
  Receipt Date: 20200522
  Transmission Date: 20200714
  Serious: Yes (Hospitalization, Other)
  Sender: FDA-Public Use
  Company Number: GB-CIPLA LTD.-2019GB02872

PATIENT

DRUGS (11)
  1. TENOFOVIR [Suspect]
     Active Substance: TENOFOVIR
     Indication: ANTIVIRAL TREATMENT
     Dosage: 300 MILLIGRAM, QD
     Route: 048
     Dates: start: 20100610
  2. NEVIRAPINE. [Suspect]
     Active Substance: NEVIRAPINE
     Indication: ANTIVIRAL TREATMENT
     Dosage: 400 MILLIGRAM, QD
     Route: 048
     Dates: start: 20090101, end: 20100610
  3. RALTEGRAVIR POTASSIUM [Concomitant]
     Active Substance: RALTEGRAVIR POTASSIUM
     Indication: HIV INFECTION
     Dosage: 1 DOSAGE FORM, QD
     Route: 048
     Dates: start: 20100610
  4. LAMIVUDINE. [Suspect]
     Active Substance: LAMIVUDINE
     Indication: ANTIVIRAL TREATMENT
     Dosage: 300 MILLIGRAM, QD
     Route: 048
     Dates: start: 20090101, end: 20100610
  5. ALUVIA [Suspect]
     Active Substance: LOPINAVIR\RITONAVIR
     Indication: ANTIVIRAL TREATMENT
     Dosage: UNK
     Route: 065
  6. ALUVIA [Suspect]
     Active Substance: LOPINAVIR\RITONAVIR
     Indication: HIV INFECTION
     Dosage: UNK, ONE COURSE
     Route: 048
     Dates: start: 20100610
  7. ISENTRESS [Suspect]
     Active Substance: RALTEGRAVIR POTASSIUM
     Indication: HIV INFECTION
     Dosage: 3200 MILLIGRAM, QD
     Route: 048
     Dates: start: 20100610
  8. TENOFOVIR [Suspect]
     Active Substance: TENOFOVIR
     Indication: HIV INFECTION
     Dosage: UNK
     Route: 048
     Dates: start: 20100610
  9. ZIDOVUDINE. [Suspect]
     Active Substance: ZIDOVUDINE
     Indication: ANTIVIRAL TREATMENT
     Dosage: 600 MILLIGRAM, QD
     Route: 048
     Dates: start: 20090110, end: 20100610
  10. ZIDOVUDINE. [Suspect]
     Active Substance: ZIDOVUDINE
     Dosage: 800 MILLIGRAM, QD
     Route: 048
     Dates: start: 20100610
  11. LAMIVUDINE. [Suspect]
     Active Substance: LAMIVUDINE
     Dosage: UNK
     Route: 048
     Dates: start: 20100610

REACTIONS (5)
  - Maternal exposure during pregnancy [Recovered/Resolved]
  - Aspartate aminotransferase increased [Unknown]
  - Caesarean section [Unknown]
  - Alanine aminotransferase increased [Unknown]
  - Hepatocellular injury [Unknown]

NARRATIVE: CASE EVENT DATE: 20100629
